FAERS Safety Report 14076721 (Version 1)
Quarter: 2017Q4

REPORT INFORMATION
  Report Type: Spontaneous
  Country: US (occurrence: US)
  Receive Date: 20171011
  Receipt Date: 20171011
  Transmission Date: 20180321
  Serious: No
  Sender: FDA-Public Use
  Company Number: US-PFIZER INC-2017439628

PATIENT
  Age: 75 Year
  Sex: Female

DRUGS (3)
  1. SALINE [Concomitant]
     Active Substance: SODIUM CHLORIDE
     Dosage: UNK
  2. AMINOPHYLLINE. [Suspect]
     Active Substance: AMINOPHYLLINE
     Indication: BLOOD PRESSURE DECREASED
     Dosage: 1 DF, UNK [2ND DOSE: 4 MINUTES AFTER THE FIRST DOSE]
  3. AMINOPHYLLINE. [Suspect]
     Active Substance: AMINOPHYLLINE
     Indication: HEART RATE DECREASED
     Dosage: 1 DF, UNK [1ST DOSE: 1 DOSE OF AMINOPHYLLINE 3 MIN AND 40 SECONDS AFTER LEXISCAN]

REACTIONS (1)
  - Drug ineffective for unapproved indication [Unknown]
